FAERS Safety Report 9901011 (Version 1)
Quarter: 2014Q1

REPORT INFORMATION
  Report Type: Spontaneous
  Country: FI (occurrence: FI)
  Receive Date: 20140217
  Receipt Date: 20140217
  Transmission Date: 20141002
  Serious: Yes (Death, Other)
  Sender: FDA-Public Use
  Company Number: FI-AMGEN-FINSP2014010750

PATIENT
  Age: 68 Year
  Sex: Female

DRUGS (3)
  1. ENBREL [Suspect]
     Indication: RHEUMATOID ARTHRITIS
     Dosage: UNK
     Route: 065
     Dates: end: 20120614
  2. ARAVA [Suspect]
     Indication: RHEUMATOID ARTHRITIS
     Dosage: UNK
     Route: 065
     Dates: end: 2012
  3. PREDNISOLON /00016201/ [Suspect]
     Indication: PRODUCT USED FOR UNKNOWN INDICATION
     Dosage: UNK
     Route: 065

REACTIONS (13)
  - Cardiac arrest [Fatal]
  - Peritoneal haemorrhage [Fatal]
  - Rheumatoid arthritis [Fatal]
  - Resuscitation [Fatal]
  - Intra-abdominal haematoma [Unknown]
  - Duodenal ulcer [Unknown]
  - Skin disorder [Unknown]
  - Abdominal pain [Unknown]
  - Clostridium test positive [Unknown]
  - Septic arthritis staphylococcal [Fatal]
  - Infection [Fatal]
  - Osteomyelitis [Unknown]
  - Abscess [Unknown]
